FAERS Safety Report 8536642-1 (Version None)
Quarter: 2012Q3

REPORT INFORMATION
  Report Type: 
  Country: None (occurrence: None)
  Receive Date: 20120725
  Receipt Date: 20120711
  Transmission Date: 20120928
  Serious: Yes (Hospitalization)
  Sender: FDA-Public Use
  Company Number: JP-ROCHE-1083232

PATIENT
  Sex: Female
  Weight: 51 kg

DRUGS (2)
  1. ACTEMRA [Suspect]
     Indication: CASTLEMAN'S DISEASE
     Route: 041
     Dates: start: 20060207
  2. PREDNISOLONE [Concomitant]
     Indication: CASTLEMAN'S DISEASE
     Route: 048
     Dates: start: 19980101

REACTIONS (1)
  - PANCREATITIS ACUTE [None]
